FAERS Safety Report 12729496 (Version 1)
Quarter: 2016Q3

REPORT INFORMATION
  Report Type: Spontaneous
  Country: BE (occurrence: BE)
  Receive Date: 20160909
  Receipt Date: 20160909
  Transmission Date: 20161109
  Serious: Yes (Other)
  Sender: FDA-Public Use
  Company Number: BE-JNJFOC-20160907557

PATIENT
  Sex: Male

DRUGS (1)
  1. STELARA [Suspect]
     Active Substance: USTEKINUMAB
     Indication: PSORIASIS
     Route: 058
     Dates: start: 20150604, end: 201603

REACTIONS (3)
  - Hodgkin^s disease [Unknown]
  - Feeling abnormal [Unknown]
  - Influenza like illness [Unknown]

NARRATIVE: CASE EVENT DATE: 2016
